FAERS Safety Report 20375371 (Version 2)
Quarter: 2022Q2

REPORT INFORMATION
  Report Type: Spontaneous
  Country: US (occurrence: US)
  Receive Date: 20220125
  Receipt Date: 20220523
  Transmission Date: 20220721
  Serious: Yes (Other)
  Sender: FDA-Public Use
  Company Number: US-SAOL THERAPEUTICS-2022SAO00008

PATIENT
  Age: 19 Year
  Sex: Male

DRUGS (3)
  1. LIORESAL [Suspect]
     Active Substance: BACLOFEN
     Indication: Muscle spasticity
     Dosage: 970 ?G, \DAY
     Route: 037
     Dates: end: 20220107
  2. LIORESAL [Suspect]
     Active Substance: BACLOFEN
     Dosage: 1050 ?G, \DAY
     Route: 037
     Dates: start: 20220107, end: 2022
  3. LIORESAL [Suspect]
     Active Substance: BACLOFEN
     Dosage: UNK ?G, \DAY; FLOW RATE INCREASED (NOT SPECIFIED)
     Route: 037
     Dates: start: 2022

REACTIONS (3)
  - Spinal operation [Unknown]
  - Drug withdrawal syndrome [Recovering/Resolving]
  - Anxiety [Recovered/Resolved]

NARRATIVE: CASE EVENT DATE: 20220103
